FAERS Safety Report 26055515 (Version 1)
Quarter: 2025Q4

REPORT INFORMATION
  Report Type: Spontaneous
  Country: US (occurrence: US)
  Receive Date: 20251117
  Receipt Date: 20251117
  Transmission Date: 20260118
  Serious: Yes (Other)
  Sender: BRISTOL-MYERS SQUIBB COMPANY
  Company Number: US-BRISTOL-MYERS SQUIBB COMPANY-2025-152749

PATIENT
  Age: 63 Year
  Sex: Male

DRUGS (2)
  1. POMALYST [Suspect]
     Active Substance: POMALIDOMIDE
     Indication: Plasma cell myeloma
     Dosage: DRUG SEPARATE DOSAGE NUMBER: 21
  2. POMALYST [Suspect]
     Active Substance: POMALIDOMIDE
     Dosage: SECOND CAPSULE

REACTIONS (2)
  - Dementia [Unknown]
  - Parkinson^s disease [Unknown]
